FAERS Safety Report 9475689 (Version 1)
Quarter: 2013Q3

REPORT INFORMATION
  Report Type: Spontaneous
  Country: US (occurrence: None)
  Receive Date: 20130821
  Receipt Date: 20130821
  Transmission Date: 20140515
  Serious: Yes (Hospitalization)
  Sender: FDA-Public Use
  Company Number: 2013-002597

PATIENT
  Sex: Female

DRUGS (2)
  1. OVCON 35 [Suspect]
     Indication: MENORRHAGIA
     Route: 048
     Dates: start: 201302
  2. OVCON 35 [Suspect]
     Indication: ACNE
     Route: 048
     Dates: start: 201302

REACTIONS (8)
  - Nausea [None]
  - Vomiting [None]
  - Diarrhoea [None]
  - Pain [None]
  - Malaise [None]
  - Myalgia [None]
  - Abdominal distension [None]
  - Menorrhagia [None]
